FAERS Safety Report 10247159 (Version 2)
Quarter: 2014Q3

REPORT INFORMATION
  Report Type: Report from Study
  Country: US (occurrence: None)
  Receive Date: 20140617
  Receipt Date: 20140707
  Transmission Date: 20150326
  Serious: Yes (Death)
  Sender: FDA-Public Use
  Company Number: HA14-221-AE

PATIENT
  Age: 75 Year
  Sex: Male
  Weight: 74.8 kg

DRUGS (13)
  1. IBUPROFEN. [Suspect]
     Active Substance: IBUPROFEN
  2. BUSPIRONE [Concomitant]
     Active Substance: BUSPIRONE HYDROCHLORIDE
  3. SIMVASTATIN. [Concomitant]
     Active Substance: SIMVASTATIN
  4. PLACEBO [Suspect]
     Active Substance: UNSPECIFIED INGREDIENT
  5. PARACETAMOL (TYLENOL ARTHRITIS) [Concomitant]
  6. LORAZEPAM. [Concomitant]
     Active Substance: LORAZEPAM
  7. NAPROXEN. [Suspect]
     Active Substance: NAPROXEN
     Indication: OSTEOARTHRITIS
     Route: 048
     Dates: start: 20130910
  8. CELECOXIB. [Suspect]
     Active Substance: CELECOXIB
  9. NEXIUM [Concomitant]
     Active Substance: ESOMEPRAZOLE MAGNESIUM
  10. ACETYLSALICYLIC ACID (ASA) [Concomitant]
  11. FELODIPINE (PLENDIL) [Concomitant]
  12. VENLAFAXINE HYDROCHLORIDE (EFFEXOR) [Concomitant]
  13. ZOPLICONE [Concomitant]
     Active Substance: ZOPICLONE

REACTIONS (2)
  - Myocardial infarction [None]
  - Death [None]

NARRATIVE: CASE EVENT DATE: 20140502
